FAERS Safety Report 19352014 (Version 5)
Quarter: 2022Q2

REPORT INFORMATION
  Report Type: Report from Study
  Country: GB (occurrence: GB)
  Receive Date: 20210531
  Receipt Date: 20220615
  Transmission Date: 20220721
  Serious: Yes (Death, Hospitalization)
  Sender: FDA-Public Use
  Company Number: GB-ROCHE-2828534

PATIENT
  Age: 44 Year
  Sex: Female
  Weight: 68.9 kg

DRUGS (33)
  1. BEVACIZUMAB [Suspect]
     Active Substance: BEVACIZUMAB
     Dosage: 1000 MG
     Route: 065
     Dates: start: 20201216
  2. PACLITAXEL [Suspect]
     Active Substance: PACLITAXEL
     Indication: Non-small cell lung cancer
     Dosage: 240 MG
     Route: 065
     Dates: start: 20201216
  3. CARBOPLATIN [Suspect]
     Active Substance: CARBOPLATIN
     Indication: Non-small cell lung cancer
     Dosage: 450 MG
     Route: 065
     Dates: start: 20201216
  4. ATEZOLIZUMAB [Suspect]
     Active Substance: ATEZOLIZUMAB
     Indication: Non-small cell lung cancer
     Dosage: 1200 MG, EVERY 3 WEEKS
     Route: 041
     Dates: start: 20201216, end: 20210217
  5. ETOPOSIDE [Suspect]
     Active Substance: ETOPOSIDE
     Indication: Non-small cell lung cancer
     Dosage: UNK
     Route: 065
  6. ETOPOSIDE [Suspect]
     Active Substance: ETOPOSIDE
     Dosage: UNK
     Route: 048
  7. AMITRIPTYLINE [Concomitant]
     Active Substance: AMITRIPTYLINE
     Dosage: 1 DF, DAILY
     Route: 065
  8. CITALOPRAM [Concomitant]
     Active Substance: CITALOPRAM HYDROBROMIDE
     Dosage: 1 DF, DAILY
     Route: 065
  9. COSMOCOL [Concomitant]
     Indication: Constipation
     Dosage: 1 DF, AS NEEDED
     Route: 065
     Dates: start: 20190906
  10. COSMOCOL [Concomitant]
     Indication: Constipation
  11. DALTEPARIN [Concomitant]
     Active Substance: DALTEPARIN
     Dosage: 1 DF, DAILY
     Route: 065
     Dates: start: 20201228
  12. DOCUSATE [Concomitant]
     Active Substance: DOCUSATE
     Indication: Constipation
     Dosage: 1 AS NECESSARY
     Route: 065
     Dates: start: 20210118
  13. IBUPROFEN [Concomitant]
     Active Substance: IBUPROFEN
     Indication: Pain
     Dosage: 1 AS NECESSARY
     Route: 065
  14. POLYETHYLENE GLYCOL 3350\POTASSIUM CHLORIDE\SODIUM BICARBONATE\SODIUM [Concomitant]
     Active Substance: POLYETHYLENE GLYCOL 3350\POTASSIUM CHLORIDE\SODIUM BICARBONATE\SODIUM CHLORIDE
     Dosage: UNK
     Route: 065
  15. LEVOTHYROXINE [Concomitant]
     Active Substance: LEVOTHYROXINE
     Dosage: 1 DF, DAILY
     Route: 065
  16. MORPHINE [Concomitant]
     Active Substance: MORPHINE
     Indication: Cancer pain
     Dosage: 2 DF, DAILY
     Route: 065
     Dates: start: 20201203
  17. MORPHINE [Concomitant]
     Active Substance: MORPHINE
     Dosage: 120 MG
  18. MORPHINE [Concomitant]
     Active Substance: MORPHINE
     Dosage: 90 MG, 2X/DAY
  19. OMEPRAZOLE [Concomitant]
     Active Substance: OMEPRAZOLE
     Indication: Prophylaxis
     Dosage: 1 DF, DAILY
     Route: 065
     Dates: start: 20200724
  20. ONDANSETRON [Concomitant]
     Active Substance: ONDANSETRON
     Indication: Prophylaxis
     Dosage: 3 DF, DAILY
     Route: 065
     Dates: start: 20210211
  21. ORAMORPH SR SUSTAINED RELEASE [Concomitant]
     Active Substance: MORPHINE SULFATE
     Indication: Cancer pain
     Dosage: 1 DF, AS NEEDED
     Route: 065
     Dates: start: 20201124
  22. ACETAMINOPHEN [Concomitant]
     Active Substance: ACETAMINOPHEN
     Dosage: 4 DF, DAILY
     Route: 065
     Dates: start: 20201223
  23. SENNA LEAF [Concomitant]
     Active Substance: SENNA LEAF
  24. POLYETHYLENE GLYCOLS [Concomitant]
     Active Substance: POLYETHYLENE GLYCOLS
     Indication: Constipation
     Dosage: 1 AS NECESSARY
     Route: 065
     Dates: start: 20190906
  25. DEXAMETHASONE [Concomitant]
     Active Substance: DEXAMETHASONE
     Dosage: 20 MG
     Dates: start: 20201216, end: 20201216
  26. DEXAMETHASONE [Concomitant]
     Active Substance: DEXAMETHASONE
     Dosage: 20 MG
     Dates: start: 20210127, end: 20210127
  27. DEXAMETHASONE [Concomitant]
     Active Substance: DEXAMETHASONE
     Dosage: 20 MG
     Dates: start: 20210106, end: 20210106
  28. ESTRADIOL [Concomitant]
     Active Substance: ESTRADIOL
     Route: 067
  29. LEVOMEPROMAZINE [Concomitant]
     Active Substance: LEVOMEPROMAZINE
     Dosage: 12.5 MG
  30. METOCLOPRAMIDE [Concomitant]
     Active Substance: METOCLOPRAMIDE
     Dosage: 1 UNK, AS NEEDED
     Dates: start: 20210310, end: 20210320
  31. RANITIDINE [Concomitant]
     Active Substance: RANITIDINE
     Dosage: 50 MG
     Dates: start: 20201216, end: 20201216
  32. RANITIDINE [Concomitant]
     Active Substance: RANITIDINE
     Dosage: 50 UNK
     Dates: start: 20210106, end: 20210106
  33. RANITIDINE [Concomitant]
     Active Substance: RANITIDINE
     Dosage: 50 UNK
     Dates: start: 20210127, end: 20210127

REACTIONS (3)
  - Hepatic failure [Recovered/Resolved]
  - Disease progression [Fatal]
  - Abdominal pain upper [Not Recovered/Not Resolved]

NARRATIVE: CASE EVENT DATE: 20210309
